FAERS Safety Report 16010518 (Version 1)
Quarter: 2019Q1

REPORT INFORMATION
  Report Type: Spontaneous
  Country: US (occurrence: US)
  Receive Date: 20190225
  Receipt Date: 20190225
  Transmission Date: 20190418
  Serious: No
  Sender: FDA-Public Use
  Company Number: US-PFIZER INC-2018202414

PATIENT
  Age: 58 Year
  Sex: Female
  Weight: 54 kg

DRUGS (1)
  1. LYRICA [Suspect]
     Active Substance: PREGABALIN
     Indication: NEUROPATHY PERIPHERAL
     Dosage: 50 MG, 1X/DAY(AT LUNCHTIME WITH FOOD)
     Route: 048
     Dates: start: 201802

REACTIONS (3)
  - Drug hypersensitivity [Unknown]
  - Intentional product misuse [Unknown]
  - Drug effect incomplete [Unknown]
